FAERS Safety Report 11066293 (Version 2)
Quarter: 2015Q2

REPORT INFORMATION
  Report Type: Spontaneous
  Country: US (occurrence: US)
  Receive Date: 20150425
  Receipt Date: 20150525
  Transmission Date: 20150821
  Serious: No
  Sender: FDA-Public Use
  Company Number: US-JNJFOC-20131109786

PATIENT
  Age: 5 Year
  Sex: Male

DRUGS (1)
  1. REMICADE [Suspect]
     Active Substance: INFLIXIMAB
     Indication: COLITIS ULCERATIVE
     Route: 042

REACTIONS (4)
  - Diarrhoea [Unknown]
  - Cough [Recovering/Resolving]
  - Pyrexia [Recovered/Resolved]
  - Sinus congestion [Recovering/Resolving]
